FAERS Safety Report 24862488 (Version 1)
Quarter: 2025Q1

REPORT INFORMATION
  Report Type: Spontaneous
  Country: CA (occurrence: CA)
  Receive Date: 20250120
  Receipt Date: 20250120
  Transmission Date: 20250409
  Serious: Yes (Life-Threatening, Hospitalization, Other)
  Sender: PFIZER
  Company Number: CA-PFIZER INC-202500010736

PATIENT
  Age: 12 Month
  Sex: Female

DRUGS (3)
  1. CYTARABINE [Suspect]
     Active Substance: CYTARABINE
     Dosage: 27 MG, 2X/DAY (1 EVERY 12 HOURS)
     Route: 042
  2. CERUBIDINE [Suspect]
     Active Substance: DAUNORUBICIN HYDROCHLORIDE
     Indication: Acute myeloid leukaemia
     Route: 042
  3. ETOPOSIDE [Suspect]
     Active Substance: ETOPOSIDE
     Indication: Acute myeloid leukaemia
     Dosage: 28 MG, 1X/DAY
     Route: 042

REACTIONS (3)
  - Enterovirus test positive [Recovered/Resolved]
  - Human rhinovirus test positive [Recovered/Resolved]
  - Pyrexia [Recovered/Resolved]
